FAERS Safety Report 16733309 (Version 1)
Quarter: 2019Q3

REPORT INFORMATION
  Report Type: Spontaneous
  Country: NL (occurrence: NL)
  Receive Date: 20190823
  Receipt Date: 20190823
  Transmission Date: 20191005
  Serious: Yes (Hospitalization)
  Sender: FDA-Public Use
  Company Number: NL-SUN PHARMACEUTICAL INDUSTRIES LTD-2019RR-218527

PATIENT
  Age: 69 Year
  Sex: Female
  Weight: 82 kg

DRUGS (10)
  1. HYDROCHLOORTHIAZIDE 12,5MG HYDROCHLOORTHIAZIDE TABLET 12,5MG [Concomitant]
     Indication: PRODUCT USED FOR UNKNOWN INDICATION
     Dosage: 12 MILLIGRAM, DAILY, 1DD1
     Route: 065
  2. LEVOTHYROXINE 50MCG LEVOTHYROXINE TABLET  50UG (ZUUR) [Concomitant]
     Indication: PRODUCT USED FOR UNKNOWN INDICATION
     Dosage: 50 MICROGRAM, DAILY, 1DD1
     Route: 065
  3. OXYCODON CAPSULE, 5 MG (MILLIGRAM )OXYCODON CAPSULE 5MG [Suspect]
     Active Substance: OXYCODONE
     Indication: HERPES ZOSTER
     Dosage: 5 MILLIGRAM, BID, 2DD5MG
     Route: 050
     Dates: start: 20190719, end: 20190720
  4. BISACODY LBISACODYL [Concomitant]
     Indication: PRODUCT USED FOR UNKNOWN INDICATION
     Dosage: 10 MILLIGRAM, DAILY, 1DD10MG
     Route: 065
  5. LISINOPRIL 5MG LISINOPRIL TABLET  5MG [Concomitant]
     Indication: PRODUCT USED FOR UNKNOWN INDICATION
     Dosage: 5 MILLIGRAM, DAILY, 1DD1
     Route: 065
  6. VALACICLOVIR [Suspect]
     Active Substance: VALACYCLOVIR HYDROCHLORIDE
     Indication: HERPES ZOSTER
     Dosage: 1000 MILLIGRAM, TID, 3DD1000MG
     Route: 050
     Dates: start: 20190719, end: 20190720
  7. COLECALCIFEROL 800IECOLECALCIFEROL TABLET   800IE [Concomitant]
     Indication: PRODUCT USED FOR UNKNOWN INDICATION
     Dosage: 800 INTERNATIONAL UNIT, DAILY, 1DD1
     Route: 065
  8. URSODEOXYCHOLZUUR 250MG URSODEOXYCHOLZUUR CAPSULE 250MG [Concomitant]
     Indication: PRODUCT USED FOR UNKNOWN INDICATION
     Dosage: 250 MILLIGRAM, DAILY, 1DD1
     Route: 065
  9. CORTIMENT 9M GCORTIMENT TABLET MVA 9MG BUDESONIDE TABLET MGA 9MG [Concomitant]
     Indication: PRODUCT USED FOR UNKNOWN INDICATION
     Dosage: 9 MILLIGRAM, DAILY, 1DD1
     Route: 065
  10. PICOPREP PICOPREP POEDER VOOR DRANK SACHET 16,1GPICOZWAVELZUUR/MGO/C [Concomitant]
     Indication: PRODUCT USED FOR UNKNOWN INDICATION
     Dosage: 16 GRAM, DAILY, 1DD1
     Route: 065

REACTIONS (5)
  - Swollen tongue [Recovering/Resolving]
  - Swelling [Recovering/Resolving]
  - Dyspnoea [Recovering/Resolving]
  - Pharyngeal swelling [Recovering/Resolving]
  - Pruritus [Recovering/Resolving]

NARRATIVE: CASE EVENT DATE: 20190719
